FAERS Safety Report 5708613-1 (Version None)
Quarter: 2008Q2

REPORT INFORMATION
  Report Type: 
  Country: None (occurrence: None)
  Receive Date: 20080417
  Receipt Date: 20080408
  Transmission Date: 20081010
  Serious: Yes (Death, Life-Threatening, Other)
  Sender: FDA-Public Use
  Company Number: JP-SANOFI-SYNTHELABO-A01200804103

PATIENT
  Sex: Female
  Weight: 41 kg

DRUGS (12)
  1. FRESH FROZEN HUMAN PLASMA [Concomitant]
     Dosage: 10 IU
     Route: 041
     Dates: start: 20070110, end: 20070111
  2. CONCENTRATED HUMAN RED BLOOD CELLS [Concomitant]
     Dosage: 4 IU
     Route: 041
     Dates: start: 20070110, end: 20070117
  3. AMITRIPTYLINE HYDROCHLORIDE [Concomitant]
     Indication: INSOMNIA
     Dosage: 10 MG
     Route: 048
     Dates: start: 20060720, end: 20070120
  4. LOXOPROFEN SODIUM [Concomitant]
     Indication: CANCER PAIN
     Route: 048
     Dates: start: 20060720, end: 20070120
  5. MEXILETINE HYDROCHLORIDE [Concomitant]
     Indication: CANCER PAIN
     Route: 048
     Dates: start: 20060720, end: 20070120
  6. CLONAZEPAM [Concomitant]
     Indication: CANCER PAIN
     Dosage: 0.5 MG
     Route: 048
     Dates: start: 20060720, end: 20070120
  7. DEXAMETHASONE SODIUM PHOSPHATE [Concomitant]
     Indication: PREMEDICATION
     Route: 041
     Dates: start: 20060725, end: 20061226
  8. LEUCOVORIN CALCIUM [Concomitant]
     Route: 041
     Dates: start: 20060725, end: 20060725
  9. OXALIPLATIN [Suspect]
     Indication: RECTAL CANCER
     Route: 041
     Dates: start: 20060725, end: 20060725
  10. CONCENTRATED HUMAN BLOOD PLATELET [Concomitant]
     Dosage: 10 IU
     Route: 041
     Dates: start: 20070111, end: 20070117
  11. FLUOROURACIL [Suspect]
     Route: 040
     Dates: start: 20060725, end: 20060725
  12. FLUOROURACIL [Suspect]
     Route: 041
     Dates: start: 20060725, end: 20060726

REACTIONS (4)
  - HAEMOGLOBIN DECREASED [None]
  - INTERSTITIAL LUNG DISEASE [None]
  - LEUKOPENIA [None]
  - THROMBOCYTOPENIA [None]
